FAERS Safety Report 7523784-2 (Version None)
Quarter: 2011Q2

REPORT INFORMATION
  Report Type: 
  Country: None (occurrence: None)
  Receive Date: 20110603
  Receipt Date: 20110525
  Transmission Date: 20111010
  Serious: Yes (Hospitalization)
  Sender: FDA-Public Use
  Company Number: ES-ASTRAZENECA-2011SE32153

PATIENT
  Age: 66 Year
  Sex: Female

DRUGS (5)
  1. VALPROIC ACID [Interacting]
     Indication: BIPOLAR DISORDER
  2. QUETIAPINE [Interacting]
     Route: 048
     Dates: start: 20070301
  3. VALPROIC ACID [Interacting]
  4. CLOPIDOGREL [Concomitant]
  5. QUETIAPINE [Suspect]
     Indication: BIPOLAR DISORDER
     Route: 048
     Dates: start: 20070301

REACTIONS (3)
  - DRUG INTERACTION [None]
  - PARKINSONISM [None]
  - COGNITIVE DISORDER [None]
